FAERS Safety Report 24272129 (Version 1)
Quarter: 2024Q3

REPORT INFORMATION
  Report Type: Spontaneous
  Country: FR (occurrence: FR)
  Receive Date: 20240902
  Receipt Date: 20240902
  Transmission Date: 20241017
  Serious: Yes (Other)
  Sender: BRISTOL MYERS SQUIBB
  Company Number: FR-BRISTOL-MYERS SQUIBB COMPANY-2024-138723

PATIENT
  Age: 77 Year
  Sex: Female

DRUGS (2)
  1. ELIQUIS [Suspect]
     Active Substance: APIXABAN
     Indication: Atrial fibrillation
  2. KARDEGIC [Suspect]
     Active Substance: ASPIRIN DL-LYSINE
     Indication: Product used for unknown indication

REACTIONS (3)
  - Haemorrhage [Unknown]
  - Duodenal ulcer [Unknown]
  - Liver disorder [Unknown]
